FAERS Safety Report 20174933 (Version 2)
Quarter: 2021Q4

REPORT INFORMATION
  Report Type: Spontaneous
  Country: US (occurrence: US)
  Receive Date: 20211213
  Receipt Date: 20211223
  Transmission Date: 20220303
  Serious: No
  Sender: FDA-Public Use
  Company Number: US-AMGEN-USASL2021195274

PATIENT
  Age: 72 Year
  Sex: Female

DRUGS (8)
  1. OTEZLA [Suspect]
     Active Substance: APREMILAST
     Indication: Guttate psoriasis
     Dosage: 30 MILLIGRAM, BID
     Route: 048
     Dates: start: 20211113
  2. CANDESARTAN [Concomitant]
     Active Substance: CANDESARTAN
  3. ESTRADIOL [Concomitant]
     Active Substance: ESTRADIOL
  4. LEVOTHYROXINE [Concomitant]
     Active Substance: LEVOTHYROXINE
  5. METFORMIN [Concomitant]
     Active Substance: METFORMIN HYDROCHLORIDE
  6. METOPROLOL SUCCINATE [Concomitant]
     Active Substance: METOPROLOL SUCCINATE
  7. MONTELUKAST [Concomitant]
     Active Substance: MONTELUKAST SODIUM
  8. SILDENAFIL [Concomitant]
     Active Substance: SILDENAFIL

REACTIONS (2)
  - Abdominal discomfort [Not Recovered/Not Resolved]
  - Headache [Not Recovered/Not Resolved]

NARRATIVE: CASE EVENT DATE: 20210101
